FAERS Safety Report 26165963 (Version 1)
Quarter: 2025Q4

REPORT INFORMATION
  Report Type: Spontaneous
  Country: EU (occurrence: EU)
  Receive Date: 20251216
  Receipt Date: 20251216
  Transmission Date: 20260117
  Serious: Yes (Hospitalization, Other)
  Sender: MERCK SHARP & DOHME LLC
  Company Number: EU-009507513-2360782

PATIENT
  Age: 74 Year
  Sex: Female

DRUGS (5)
  1. PEMBROLIZUMAB [Suspect]
     Active Substance: PEMBROLIZUMAB
     Indication: Squamous cell carcinoma of lung
     Dates: start: 2023
  2. PACLITAXEL [Suspect]
     Active Substance: PACLITAXEL
     Indication: Squamous cell carcinoma of lung
     Dates: start: 202308
  3. PACLITAXEL [Suspect]
     Active Substance: PACLITAXEL
     Indication: Squamous cell carcinoma of lung
     Dosage: WAS ADMINISTERED IN A REDUCTION OF 20%
  4. CARBOPLATIN [Suspect]
     Active Substance: CARBOPLATIN
     Indication: Squamous cell carcinoma of lung
     Dates: start: 202308
  5. CARBOPLATIN [Suspect]
     Active Substance: CARBOPLATIN
     Indication: Squamous cell carcinoma of lung
     Dosage: WAS ADMINISTERED IN A REDUCTION OF 20%

REACTIONS (11)
  - Ischaemic stroke [Unknown]
  - Malignant neoplasm progression [Unknown]
  - Hemiparesis [Unknown]
  - Pleural effusion [Recovered/Resolved]
  - Hypothyroidism [Unknown]
  - Cardiac failure congestive [Unknown]
  - Erythema [Unknown]
  - Therapy partial responder [Unknown]
  - Aphasia [Unknown]
  - Dyspnoea [Unknown]
  - Atrial fibrillation [Unknown]
